FAERS Safety Report 19253736 (Version 11)
Quarter: 2025Q1

REPORT INFORMATION
  Report Type: Report from Study
  Country: CA (occurrence: CA)
  Receive Date: 20210513
  Receipt Date: 20250117
  Transmission Date: 20250409
  Serious: Yes (Hospitalization, Other)
  Sender: TAKEDA
  Company Number: CA-TAKEDA-2017TUS003780

PATIENT
  Age: 60 Year
  Sex: Female

DRUGS (20)
  1. VEDOLIZUMAB [Suspect]
     Active Substance: VEDOLIZUMAB
     Indication: Crohn^s disease
  2. VEDOLIZUMAB [Suspect]
     Active Substance: VEDOLIZUMAB
  3. VEDOLIZUMAB [Suspect]
     Active Substance: VEDOLIZUMAB
  4. VEDOLIZUMAB [Suspect]
     Active Substance: VEDOLIZUMAB
  5. VEDOLIZUMAB [Suspect]
     Active Substance: VEDOLIZUMAB
  6. VEDOLIZUMAB [Suspect]
     Active Substance: VEDOLIZUMAB
  7. VEDOLIZUMAB [Suspect]
     Active Substance: VEDOLIZUMAB
  8. VEDOLIZUMAB [Suspect]
     Active Substance: VEDOLIZUMAB
  9. VEDOLIZUMAB [Suspect]
     Active Substance: VEDOLIZUMAB
  10. VEDOLIZUMAB [Suspect]
     Active Substance: VEDOLIZUMAB
  11. VEDOLIZUMAB [Suspect]
     Active Substance: VEDOLIZUMAB
  12. VEDOLIZUMAB [Suspect]
     Active Substance: VEDOLIZUMAB
     Indication: Crohn^s disease
     Dosage: 108 MILLIGRAM, Q2WEEKS
     Dates: start: 20220117
  13. RIZATRIPTAN [Concomitant]
     Active Substance: RIZATRIPTAN
  14. BUTRANS [Concomitant]
     Active Substance: BUPRENORPHINE
     Dosage: 5 MILLIGRAM, 1/WEEK
  15. MYRBETRIQ [Concomitant]
     Active Substance: MIRABEGRON
     Dosage: 50 MILLIGRAM, QD
  16. ZOPICLONE [Concomitant]
     Active Substance: ZOPICLONE
     Dosage: 7.5 MILLIGRAM, QD
  17. RAN NABILONE [Concomitant]
  18. RABEPRAZOLE [Concomitant]
     Active Substance: RABEPRAZOLE
     Dosage: 20 MILLIGRAM, QD
  19. GRAVOL [Concomitant]
     Active Substance: DIMENHYDRINATE
  20. MESALAMINE [Concomitant]
     Active Substance: MESALAMINE
     Dosage: UNK UNK, QD

REACTIONS (19)
  - Ventricular extrasystoles [Unknown]
  - Blood pressure increased [Unknown]
  - Lower respiratory tract infection [Unknown]
  - Pneumonia [Recovered/Resolved]
  - Migraine [Not Recovered/Not Resolved]
  - Diarrhoea [Not Recovered/Not Resolved]
  - Feeling hot [Not Recovered/Not Resolved]
  - Abdominal pain upper [Unknown]
  - Chest discomfort [Not Recovered/Not Resolved]
  - Therapeutic reaction time decreased [Unknown]
  - Rhinorrhoea [Not Recovered/Not Resolved]
  - Flushing [Not Recovered/Not Resolved]
  - Abdominal distension [Unknown]
  - Headache [Not Recovered/Not Resolved]
  - Fatigue [Not Recovered/Not Resolved]
  - Nausea [Not Recovered/Not Resolved]
  - Cough [Not Recovered/Not Resolved]
  - Pyrexia [Not Recovered/Not Resolved]
  - Oropharyngeal pain [Not Recovered/Not Resolved]

NARRATIVE: CASE EVENT DATE: 20170201
